FAERS Safety Report 5747505-9 (Version None)
Quarter: 2008Q2

REPORT INFORMATION
  Report Type: 
  Country: None (occurrence: None)
  Receive Date: 20080523
  Receipt Date: 20080513
  Transmission Date: 20081010
  Serious: Yes (Hospitalization)
  Sender: FDA-Public Use
  Company Number: US-ROCHE-557275

PATIENT
  Sex: Female
  Weight: 57.6 kg

DRUGS (61)
  1. CEFTRIAXONE [Suspect]
     Indication: PNEUMONIA
     Route: 042
     Dates: start: 20080309, end: 20080318
  2. PROCRIT [Suspect]
     Indication: NEPHROGENIC ANAEMIA
     Dosage: DRUG REPORTED AS: PROCRIT (ERYTHROPOIETIN) INJECTION. RECENT DOSE GIVEN ON 29/02/08.
     Route: 058
     Dates: start: 20070913
  3. LINEZOLID [Suspect]
     Indication: PNEUMONIA
     Route: 042
     Dates: start: 20080310
  4. CIPRO [Concomitant]
     Indication: URINARY TRACT INFECTION
     Dosage: DRUG REPORTED AS ^CIPROFLAXINE HYDROCHLORIDE^
     Route: 048
     Dates: start: 20070913
  5. MYCOLOG [Concomitant]
     Indication: RASH
     Route: 061
     Dates: start: 20071025
  6. MYCOLOG [Concomitant]
     Route: 061
     Dates: start: 20080309
  7. MYCOLOG [Concomitant]
     Route: 061
     Dates: start: 20071025
  8. MYCOLOG [Concomitant]
     Route: 061
     Dates: start: 20080309
  9. MYCOLOG [Concomitant]
     Route: 061
     Dates: start: 20071025
  10. MYCOLOG [Concomitant]
     Route: 061
     Dates: start: 20080309
  11. MYCOLOG [Concomitant]
     Route: 061
     Dates: start: 20071025
  12. MYCOLOG [Concomitant]
     Route: 061
     Dates: start: 20080309
  13. COLACE [Concomitant]
     Dosage: STOP DATE UNKNOWN
     Route: 048
     Dates: start: 20070508
  14. COLACE [Concomitant]
     Route: 048
     Dates: start: 20080309
  15. ZOLOFT [Concomitant]
     Dosage: STOP DATE UNKNOWN. DRUG REPORTED AS ^SERTRALINE HYDROCHLORIDE^
     Route: 048
     Dates: start: 20070329
  16. ZOLOFT [Concomitant]
     Route: 048
     Dates: start: 20080309
  17. NORVASC [Concomitant]
     Dosage: DRUG REPORTED AS ^AMLODIPINE BESILATE^
     Route: 048
     Dates: start: 20060919
  18. NORVASC [Concomitant]
     Route: 048
     Dates: start: 20080313
  19. FOSAMAX [Concomitant]
     Dosage: DRUG REPORTED AS ^ALENDRONATE SODIUM^
     Route: 048
     Dates: start: 20060920
  20. NEXIUM [Concomitant]
     Route: 048
     Dates: start: 20060919
  21. MULTIVITAMIN NOS [Concomitant]
     Route: 048
     Dates: start: 20070209
  22. FORTEO [Concomitant]
     Route: 058
     Dates: start: 20061012
  23. SEROQUEL [Concomitant]
     Dosage: DRUG REPORTED AS ^QUELPIAPINE FUMARATE^
     Route: 048
     Dates: start: 20070925
  24. SEROQUEL [Concomitant]
     Route: 048
     Dates: start: 20070529
  25. IBUPROFEN [Concomitant]
     Route: 048
     Dates: start: 20061230
  26. COMBIVENT [Concomitant]
     Dates: start: 20060919
  27. COMBIVENT [Concomitant]
     Dates: start: 20060919
  28. RITALIN [Concomitant]
     Dosage: DRUG REPORTED AS ^METHYLPHENIDATE HYDROCHLORIDE^
     Route: 048
     Dates: start: 20070713
  29. NAMENDA [Concomitant]
     Route: 048
     Dates: start: 20070628
  30. NAMENDA [Concomitant]
     Route: 048
     Dates: start: 20070309
  31. RAZADYNE [Concomitant]
     Route: 048
     Dates: start: 20071002
  32. SULFACETAMIDE SODIUM [Concomitant]
     Indication: CELLULITIS
     Dates: start: 20071011
  33. GENTAMICIN [Concomitant]
     Indication: URINARY TRACT INFECTION
     Route: 030
     Dates: start: 20070913
  34. LORTAB [Concomitant]
     Dosage: DRUG REPORTED AS ^VICODIN^
     Route: 048
     Dates: start: 20080205
  35. LORTAB [Concomitant]
     Route: 048
     Dates: start: 20080307
  36. LORTAB [Concomitant]
     Route: 048
     Dates: start: 20080309
  37. LORTAB [Concomitant]
     Dosage: DRUG REPORTED AS ^VICODIN^
     Route: 048
     Dates: start: 20080205
  38. LORTAB [Concomitant]
     Route: 048
     Dates: start: 20080307
  39. LORTAB [Concomitant]
     Route: 048
     Dates: start: 20080309
  40. LOVENOX [Concomitant]
     Dosage: DRUG REPORTED AS ^HEPARIN-FRACTION, SODIUM SALT^
     Route: 058
     Dates: start: 20080310
  41. MUCINEX [Concomitant]
     Indication: COUGH
     Route: 048
     Dates: start: 20080308
  42. ROBITUSSIN [Concomitant]
     Indication: PNEUMONIA
     Route: 048
     Dates: start: 20080130
  43. ATROVENT [Concomitant]
     Indication: PNEUMONIA
     Dates: start: 20080310
  44. PREDNISONE TAB [Concomitant]
     Indication: PNEUMONIA
     Route: 048
     Dates: start: 20080313
  45. PROVENTIL [Concomitant]
     Indication: PNEUMONIA
     Dates: start: 20080310
  46. GRANULEX [Concomitant]
     Route: 061
     Dates: start: 20080312
  47. GRANULEX [Concomitant]
     Route: 061
     Dates: start: 20080312
  48. GRANULEX [Concomitant]
     Route: 061
     Dates: start: 20080312
  49. MAALOX [Concomitant]
     Route: 061
     Dates: start: 20080310
  50. MAALOX [Concomitant]
     Route: 061
     Dates: start: 20080310
  51. MAALOX [Concomitant]
     Route: 061
     Dates: start: 20080310
  52. ZIPRASIDONE HCL [Concomitant]
     Indication: PNEUMONIA
     Route: 042
     Dates: start: 20080310
  53. SYNTHROID [Concomitant]
     Dosage: DRUG REPORTED AS ^LEVOTHYROXINE SODIUM^
     Route: 048
     Dates: start: 20080307
  54. TRINSICON [Concomitant]
     Route: 048
     Dates: start: 20080112
  55. TRINSICON [Concomitant]
     Route: 048
     Dates: start: 20080112
  56. TRINSICON [Concomitant]
     Route: 048
     Dates: start: 20080112
  57. TRINSICON [Concomitant]
     Route: 048
     Dates: start: 20080112
  58. TRINSICON [Concomitant]
     Route: 048
     Dates: start: 20080112
  59. MOTRIN [Concomitant]
     Route: 048
     Dates: start: 20070921
  60. SYMMETREL [Concomitant]
     Route: 048
     Dates: start: 20070228
  61. RISPERDAL [Concomitant]
     Route: 048
     Dates: start: 20070506

REACTIONS (2)
  - GASTROINTESTINAL HAEMORRHAGE [None]
  - PNEUMONIA [None]
